FAERS Safety Report 10401844 (Version 5)
Quarter: 2016Q2

REPORT INFORMATION
  Report Type: Report from Study
  Country: BR (occurrence: BR)
  Receive Date: 20140822
  Receipt Date: 20160531
  Transmission Date: 20160815
  Serious: Yes (Other)
  Sender: FDA-Public Use
  Company Number: BR-ABBVIE-13P-020-1119499-00

PATIENT
  Age: 78 Year
  Sex: Female
  Weight: 50 kg

DRUGS (19)
  1. OMEPRAZOL [Concomitant]
     Active Substance: OMEPRAZOLE
     Indication: GASTRIC DISORDER
     Route: 048
     Dates: start: 2005
  2. PARACETAMOL [Concomitant]
     Active Substance: ACETAMINOPHEN
     Indication: PAIN
     Route: 048
     Dates: start: 2012
  3. MAGNESIUM [Concomitant]
     Active Substance: MAGNESIUM
     Indication: PRODUCT USED FOR UNKNOWN INDICATION
     Route: 048
     Dates: start: 201512
  4. UNKNOWN DRUG [Concomitant]
     Active Substance: UNSPECIFIED INGREDIENT
     Indication: BLOOD PRESSURE ABNORMAL
  5. CARVEDILOL. [Concomitant]
     Active Substance: CARVEDILOL
     Indication: BLOOD PRESSURE ABNORMAL
  6. LEVANLODIPINE BESYLATE [Concomitant]
     Indication: CARDIAC DISORDER
     Route: 048
     Dates: start: 2011
  7. DIPYRONE [Concomitant]
     Active Substance: DIPYRONE
     Indication: PAIN
     Route: 048
     Dates: start: 201605
  8. LEVAMLODIPINE BESILATE [Concomitant]
     Active Substance: LEVAMLODIPINE BESYLATE
     Indication: HYPERTENSION
     Route: 048
     Dates: start: 2012
  9. VITAMIN C [Concomitant]
     Active Substance: ASCORBIC ACID
     Indication: VITAMIN SUPPLEMENTATION
     Dosage: FORM OF ADMINISTRATION: SACHET
     Route: 048
     Dates: start: 201512
  10. HUMIRA [Suspect]
     Active Substance: ADALIMUMAB
     Indication: RHEUMATOID ARTHRITIS
     Route: 058
     Dates: start: 20100811
  11. PREDNISONE. [Suspect]
     Active Substance: PREDNISONE
     Indication: PRODUCT USED FOR UNKNOWN INDICATION
     Route: 065
  12. OMEPRAZOL [Concomitant]
     Active Substance: OMEPRAZOLE
     Indication: PROPHYLAXIS
  13. ASPIRINA PREVENT [Concomitant]
     Active Substance: ASPIRIN
     Indication: ANTICOAGULANT THERAPY
     Route: 048
     Dates: start: 2013
  14. PARATRAM [Concomitant]
     Active Substance: ACETAMINOPHEN\TRAMADOL HYDROCHLORIDE
     Indication: PAIN
     Route: 048
     Dates: start: 2014
  15. TORSILAX [Concomitant]
     Active Substance: ACETAMINOPHEN\CAFFEINE\CARISOPRODOL\DICLOFENAC
     Indication: PAIN
     Route: 048
  16. CARVEDILOL. [Concomitant]
     Active Substance: CARVEDILOL
     Indication: CARDIAC DISORDER
     Route: 048
     Dates: start: 2012
  17. CARVEDILOL. [Concomitant]
     Active Substance: CARVEDILOL
     Indication: HYPERTENSION
  18. LEVANLODIPINE BESYLATE [Concomitant]
     Indication: HYPERTENSION
  19. SIMVASTATINE [Concomitant]
     Active Substance: SIMVASTATIN
     Indication: BLOOD CHOLESTEROL ABNORMAL
     Route: 048
     Dates: start: 2012

REACTIONS (27)
  - Gastrointestinal infection [Recovered/Resolved]
  - Nervousness [Recovering/Resolving]
  - Anaemia [Unknown]
  - Decreased appetite [Recovered/Resolved]
  - Nephrolithiasis [Not Recovered/Not Resolved]
  - Anal prolapse [Recovered/Resolved]
  - Anal prolapse [Recovered/Resolved]
  - Escherichia test positive [Unknown]
  - Thyroid disorder [Recovered/Resolved]
  - Anal prolapse [Not Recovered/Not Resolved]
  - Rectal prolapse [Recovering/Resolving]
  - Anal incontinence [Recovering/Resolving]
  - Intestinal haemorrhage [Unknown]
  - Thyroid disorder [Unknown]
  - Anaemia [Not Recovered/Not Resolved]
  - Muscular weakness [Unknown]
  - Urinary tract infection [Not Recovered/Not Resolved]
  - Renal impairment [Recovering/Resolving]
  - Genital discomfort [Unknown]
  - Renal impairment [Not Recovered/Not Resolved]
  - Renal atrophy [Not Recovered/Not Resolved]
  - Hypotonia [Not Recovered/Not Resolved]
  - Haematochezia [Recovering/Resolving]
  - Hypotonia [Recovered/Resolved]
  - Weight decreased [Recovered/Resolved]
  - Uterine prolapse [Not Recovered/Not Resolved]
  - Renal disorder [Unknown]

NARRATIVE: CASE EVENT DATE: 2012
